FAERS Safety Report 11559895 (Version 1)
Quarter: 2015Q3

REPORT INFORMATION
  Report Type: Spontaneous
  Country: US (occurrence: US)
  Receive Date: 20150928
  Receipt Date: 20150928
  Transmission Date: 20151125
  Serious: Yes (Hospitalization)
  Sender: FDA-Public Use
  Company Number: US-NOVOPROD-455764

PATIENT
  Age: 66 Year
  Sex: Female
  Weight: 92.97 kg

DRUGS (2)
  1. VICTOZA [Suspect]
     Active Substance: LIRAGLUTIDE
     Indication: TYPE 2 DIABETES MELLITUS
     Dosage: QUICKLY TO 1.8 MG
     Route: 058
     Dates: start: 201310, end: 20140717
  2. METAMUCIL                          /00091301/ [Concomitant]
     Indication: CONSTIPATION

REACTIONS (3)
  - Pancreatitis acute [Recovered/Resolved]
  - Constipation [Recovered/Resolved]
  - Clostridium difficile colitis [Unknown]

NARRATIVE: CASE EVENT DATE: 201406
